FAERS Safety Report 21947475 (Version 1)
Quarter: 2023Q1

REPORT INFORMATION
  Report Type: Spontaneous
  Country: US (occurrence: US)
  Receive Date: 20230202
  Receipt Date: 20230202
  Transmission Date: 20230417
  Serious: No
  Sender: FDA-Public Use
  Company Number: US-Millicent Holdings Ltd.-MILL20230030

PATIENT
  Age: 53 Year
  Sex: Female

DRUGS (1)
  1. FEMRING [Suspect]
     Active Substance: ESTRADIOL ACETATE
     Indication: Menopausal symptoms
     Dosage: 0.05 MG/DAY
     Route: 067

REACTIONS (8)
  - Therapeutic product effect decreased [Not Recovered/Not Resolved]
  - Insurance issue [None]
  - Product use issue [Unknown]
  - Hot flush [Not Recovered/Not Resolved]
  - Insomnia [None]
  - Mood swings [Not Recovered/Not Resolved]
  - Crying [Not Recovered/Not Resolved]
  - Irritability [Not Recovered/Not Resolved]
